FAERS Safety Report 9830928 (Version 1)
Quarter: 2014Q1

REPORT INFORMATION
  Report Type: Report from Study
  Country: BR (occurrence: BR)
  Receive Date: 20140120
  Receipt Date: 20140120
  Transmission Date: 20141002
  Serious: Yes (Hospitalization, Other)
  Sender: FDA-Public Use
  Company Number: PHHY2014BR004530

PATIENT
  Sex: Female
  Weight: 62 kg

DRUGS (5)
  1. EXELON PATCH [Suspect]
     Indication: DEMENTIA ALZHEIMER^S TYPE
     Dosage: 4.6 MG, DAILY (9MG/5CM2)
     Route: 062
  2. EXELON PATCH [Suspect]
     Dosage: 9.5 MG, DAILY (18MG/CM2)
     Route: 062
  3. DEPAKENE [Suspect]
     Indication: CONVULSION
  4. LAMOTRIGINE [Suspect]
     Indication: CONVULSION
     Dosage: UNK UKN, UNK
  5. GARDENAL//PHENOBARBITAL [Concomitant]
     Indication: CONVULSION
     Dosage: UNK UKN, UNK

REACTIONS (4)
  - Convulsion [Recovering/Resolving]
  - Urinary tract infection [Unknown]
  - Dementia [Unknown]
  - Speech disorder [Unknown]
